FAERS Safety Report 9512141 (Version 1)
Quarter: 2013Q1

REPORT INFORMATION
  Report Type: Spontaneous
  Country: US (occurrence: None)
  Receive Date: 20130305
  Receipt Date: 20130305
  Transmission Date: 20140127
  Serious: Yes (Hospitalization, Other)
  Sender: FDA-Public Use
  Company Number: 163-21880-12051498

PATIENT
  Age: 68 Year
  Sex: Male

DRUGS (10)
  1. REVLIMID [Suspect]
     Indication: PLASMA CELL MYELOMA
     Route: 048
     Dates: start: 20100202
  2. AMLODIPINE (AMLODIPINE) [Concomitant]
  3. BENAZEPRIL HCL (BENAZEPRIL HYDROCHLORIDE) [Concomitant]
  4. ASPIRIN-TRIN (ACETYLSALICYLIC ACID) [Concomitant]
  5. CALCIUM 500 (CALCIUM) [Concomitant]
  6. DEXAMETHASONE (DEXAMETHASONE) [Concomitant]
  7. GLUCOVANCE (GLIBOMET) [Concomitant]
  8. HUMALOG (INSULIN LISPRO) [Concomitant]
  9. INSULIN (INSULIN) [Concomitant]
  10. LEVOTHROID (LEVOTHYROXINE SODIUM) [Concomitant]

REACTIONS (2)
  - Sepsis [None]
  - Neutropenia [None]
